FAERS Safety Report 24542230 (Version 1)
Quarter: 2024Q4

REPORT INFORMATION
  Report Type: Spontaneous
  Country: CO (occurrence: CO)
  Receive Date: 20241023
  Receipt Date: 20241023
  Transmission Date: 20250115
  Serious: Yes (Life-Threatening, Other)
  Sender: AMGEN
  Company Number: CO-PFIZER INC-202400279437

PATIENT
  Sex: Male

DRUGS (1)
  1. ENBREL [Suspect]
     Active Substance: ETANERCEPT
     Indication: Spondyloarthropathy
     Dosage: 50 MG, WEEKLY
     Route: 065

REACTIONS (2)
  - Myeloid leukaemia [Recovering/Resolving]
  - Off label use [Unknown]
